FAERS Safety Report 5729446-6 (Version None)
Quarter: 2008Q2

REPORT INFORMATION
  Report Type: 
  Country: None (occurrence: None)
  Receive Date: 20080506
  Receipt Date: 20080424
  Transmission Date: 20081010
  Serious: Yes (Hospitalization, Other)
  Sender: FDA-Public Use
  Company Number: DE-ELI_LILLY_AND_COMPANY-DE200804006336

PATIENT
  Age: 55 Year
  Sex: Male

DRUGS (4)
  1. BYETTA [Suspect]
     Dosage: 10 UG, UNKNOWN
     Route: 058
     Dates: start: 20080101
  2. KEPPRA [Concomitant]
     Dosage: UNK, UNKNOWN
     Route: 065
     Dates: start: 20080101
  3. MANINIL [Concomitant]
     Dosage: UNK, UNKNOWN
     Route: 065
  4. ANTIHYPERTENSIVES [Concomitant]
     Dosage: UNK, UNKNOWN
     Route: 065

REACTIONS (3)
  - GASTROENTERITIS [None]
  - HYPOGLYCAEMIA [None]
  - RENAL FAILURE ACUTE [None]
